FAERS Safety Report 9343235 (Version 1)
Quarter: 2013Q2

REPORT INFORMATION
  Report Type: Report from Study
  Country: US (occurrence: US)
  Receive Date: 20130611
  Receipt Date: 20130611
  Transmission Date: 20140414
  Serious: No
  Sender: FDA-Public Use
  Company Number: US-009507513-1306USA003658

PATIENT
  Age: 84 Year
  Sex: Male

DRUGS (2)
  1. APREPITANT [Suspect]
     Indication: PROPHYLAXIS OF NAUSEA AND VOMITING
     Dosage: 125 MG, ONCE
     Route: 048
     Dates: start: 20110119, end: 20110119
  2. APREPITANT [Suspect]
     Dosage: 80 MG, QD
     Route: 048
     Dates: start: 20110120, end: 20110121

REACTIONS (1)
  - Nausea [Unknown]
